FAERS Safety Report 6912467-5 (Version None)
Quarter: 2010Q3

REPORT INFORMATION
  Report Type: 
  Country: None (occurrence: None)
  Receive Date: 20100806
  Receipt Date: 20080529
  Transmission Date: 20110219
  Serious: No
  Sender: FDA-Public Use
  Company Number: US-PFIZER INC-2008030419

PATIENT
  Sex: Male
  Weight: 81.818 kg

DRUGS (5)
  1. DETROL LA [Suspect]
     Indication: POLLAKIURIA
     Route: 048
     Dates: start: 20080331, end: 20080402
  2. DETROL LA [Suspect]
     Indication: MICTURITION URGENCY
  3. CARBIDOPA [Concomitant]
  4. LEVODOPA [Concomitant]
  5. VITAMIN B1 TAB [Concomitant]

REACTIONS (1)
  - HERPES ZOSTER [None]
